FAERS Safety Report 9206535 (Version 1)
Quarter: 2013Q1

REPORT INFORMATION
  Report Type: Spontaneous
  Country: US (occurrence: None)
  Receive Date: 20120709
  Receipt Date: 20120709
  Transmission Date: 20140127
  Serious: Yes (Disabling, Other)
  Sender: FDA-Public Use
  Company Number: PHHY2011US62391

PATIENT
  Age: 71 Year
  Sex: Male
  Weight: 91 kg

DRUGS (6)
  1. GLEEVEC (IMATINIB) UNKNOWN [Suspect]
     Indication: GASTROINTESTINAL STROMAL TUMOUR
     Route: 048
     Dates: start: 20100721
  2. ASPIRIN (ACETYLSALICYLIC ACID) [Suspect]
  3. SIMVASTATIN (SIMVASTATIN) [Concomitant]
  4. OMEPRAZOLE (OMEPRAZOLE) [Concomitant]
  5. OXAPROZIN (OXAPROZIN) [Concomitant]
  6. METOPROLOL SUCCINATE (METOPROLOL SUCCINATE) [Concomitant]

REACTIONS (3)
  - Anaemia [None]
  - Asthenia [None]
  - Fatigue [None]
